FAERS Safety Report 7790656-8 (Version None)
Quarter: 2011Q3

REPORT INFORMATION
  Report Type: 
  Country: None (occurrence: None)
  Receive Date: 20110930
  Receipt Date: 20110919
  Transmission Date: 20111222
  Serious: Yes (Life-Threatening, Hospitalization, Congenital Anomaly, Other)
  Sender: FDA-Public Use
  Company Number: DE-WATSON-2011-14987

PATIENT
  Sex: Male
  Weight: 3.45 kg

DRUGS (4)
  1. FOLIC ACID [Concomitant]
     Indication: PROPHYLAXIS OF NEURAL TUBE DEFECT
     Dosage: 0.4 MG, DAILY AND PRECONCEPTIONELL
     Route: 064
     Dates: start: 20100327, end: 20100903
  2. SERTRALINE HYDROCHLORIDE [Suspect]
     Indication: DEPRESSION
     Dosage: 150 MG, DAILY (100-0-50)
     Route: 064
     Dates: start: 20100512, end: 20110106
  3. PROMETHAZINE [Suspect]
     Indication: DEPRESSION
     Dosage: 60 MG, DAILY (30-0-30)
     Route: 064
     Dates: start: 20100327, end: 20110106
  4. THYRONAJOD [Concomitant]
     Indication: HYPOTHYROIDISM
     Dosage: 50 ?G/D/150 ?G/D/FROM WEEK 5 INCREASED DOSE WITH 50 ?G/D
     Route: 064
     Dates: start: 20100327, end: 20110106

REACTIONS (2)
  - NEONATAL RESPIRATORY DISTRESS SYNDROME [None]
  - FALLOT'S TETRALOGY [None]
